FAERS Safety Report 4463992-0 (Version None)
Quarter: 2004Q4

REPORT INFORMATION
  Report Type: 
  Country: None (occurrence: None)
  Receive Date: 20041001
  Receipt Date: 20030613
  Transmission Date: 20050328
  Serious: Yes (Congenital Anomaly, Other)
  Sender: FDA-Public Use
  Company Number: ZA-BRISTOL-MYERS SQUIBB COMPANY-12301768

PATIENT
  Age: 2 Week
  Sex: Male
  Weight: 2 kg

DRUGS (5)
  1. ATAZANAVIR [Suspect]
     Route: 064
     Dates: end: 20021021
  2. DIDANOSINE [Suspect]
     Route: 064
     Dates: end: 20021021
  3. STAVUDINE [Suspect]
     Route: 064
     Dates: end: 20021021
  4. COMBIVIR [Suspect]
     Route: 064
     Dates: start: 20021101
  5. NELFINAVIR [Suspect]
     Route: 064
     Dates: start: 20021101

REACTIONS (5)
  - CHORDEE [None]
  - CONGENITAL ANOMALY [None]
  - PENIS DISORDER [None]
  - PREGNANCY [None]
  - SMALL FOR DATES BABY [None]
